FAERS Safety Report 8841717 (Version 2)
Quarter: 2012Q4

REPORT INFORMATION
  Report Type: Report from Study
  Country: US (occurrence: US)
  Receive Date: 20121016
  Receipt Date: 20121024
  Transmission Date: 20130627
  Serious: Yes (Hospitalization)
  Sender: FDA-Public Use
  Company Number: US-009507513-1202USA01505

PATIENT
  Age: 59 Year
  Sex: Female
  Weight: 105.23 kg

DRUGS (5)
  1. VORINOSTAT [Suspect]
     Indication: OVARIAN CANCER
     Dosage: UNK
     Route: 048
     Dates: start: 20120112, end: 20120201
  2. CARBOPLATIN [Suspect]
     Indication: OVARIAN CANCER
  3. PACLITAXEL [Suspect]
     Indication: OVARIAN CANCER
  4. METOPROLOL [Concomitant]
  5. ASPIRIN [Concomitant]

REACTIONS (1)
  - Female genital tract fistula [Recovered/Resolved]
